FAERS Safety Report 21569371 (Version 5)
Quarter: 2023Q1

REPORT INFORMATION
  Report Type: Spontaneous
  Country: RU (occurrence: RU)
  Receive Date: 20221109
  Receipt Date: 20230331
  Transmission Date: 20230418
  Serious: Yes (Hospitalization)
  Sender: FDA-Public Use
  Company Number: RU-SA-2022SA433910

PATIENT
  Age: 35 Year
  Sex: Female
  Weight: 57 kg

DRUGS (9)
  1. APIDRA SOLOSTAR [Suspect]
     Active Substance: INSULIN GLULISINE
     Indication: Type 1 diabetes mellitus
     Dosage: 2 IU, TID
     Route: 058
     Dates: end: 20221024
  2. TOUJEO [Suspect]
     Active Substance: INSULIN GLARGINE
     Indication: Type 1 diabetes mellitus
     Dosage: 5 IU, HS
     Route: 058
  3. TOUJEO [Suspect]
     Active Substance: INSULIN GLARGINE
     Dosage: 4 IU, HS
     Route: 058
  4. TOUJEO [Suspect]
     Active Substance: INSULIN GLARGINE
     Dosage: 3 IU, HS
     Route: 058
  5. TOUJEO [Suspect]
     Active Substance: INSULIN GLARGINE
     Dosage: 2 IU, HS
     Route: 058
  6. TOUJEO [Suspect]
     Active Substance: INSULIN GLARGINE
     Dosage: 1 IU, HS
     Route: 058
     Dates: end: 20221024
  7. TOUJEO [Suspect]
     Active Substance: INSULIN GLARGINE
     Dosage: 1 IU, HS
     Route: 058
  8. NOVORAPID [Concomitant]
     Active Substance: INSULIN ASPART
     Indication: Type 1 diabetes mellitus
     Dosage: UNK
     Route: 058
  9. COMPLIVIT [Concomitant]
     Route: 048

REACTIONS (7)
  - General physical health deterioration [Recovering/Resolving]
  - Herpes virus infection [Recovering/Resolving]
  - Eye disorder [Recovering/Resolving]
  - Electric shock sensation [Recovering/Resolving]
  - Tinnitus [Recovering/Resolving]
  - Hypoglycaemia [Recovering/Resolving]
  - Blood glucose abnormal [Recovering/Resolving]

NARRATIVE: CASE EVENT DATE: 20220701
